FAERS Safety Report 12226018 (Version 2)
Quarter: 2016Q2

REPORT INFORMATION
  Report Type: Spontaneous
  Country: US (occurrence: US)
  Receive Date: 20160331
  Receipt Date: 20160404
  Transmission Date: 20160815
  Serious: Yes (Other)
  Sender: FDA-Public Use
  Company Number: US-JNJFOC-20160325248

PATIENT
  Age: 59 Year
  Sex: Male

DRUGS (2)
  1. XARELTO [Suspect]
     Active Substance: RIVAROXABAN
     Indication: HIGH FREQUENCY ABLATION
     Route: 048
     Dates: start: 201603, end: 201603
  2. XARELTO [Suspect]
     Active Substance: RIVAROXABAN
     Indication: HIGH FREQUENCY ABLATION
     Route: 048
     Dates: start: 201603, end: 201603

REACTIONS (6)
  - Haematochezia [Unknown]
  - Internal haemorrhage [Unknown]
  - Implantable defibrillator insertion [Unknown]
  - Gingival bleeding [Unknown]
  - Off label use [Unknown]
  - Product use issue [Unknown]

NARRATIVE: CASE EVENT DATE: 201603
